FAERS Safety Report 20819834 (Version 2)
Quarter: 2022Q3

REPORT INFORMATION
  Report Type: Report from Study
  Country: CO (occurrence: CO)
  Receive Date: 20220512
  Receipt Date: 20220926
  Transmission Date: 20221026
  Serious: Yes (Hospitalization)
  Sender: FDA-Public Use
  Company Number: CO-NOVARTISPH-NVSC2021CO294509

PATIENT
  Sex: Female

DRUGS (3)
  1. KISQALI [Suspect]
     Active Substance: RIBOCICLIB
     Indication: Hormone receptor positive HER2 negative breast cancer
     Dosage: UNK
     Route: 048
  2. KISQALI [Suspect]
     Active Substance: RIBOCICLIB
     Dosage: 1 DOSAGE FORM, QD (ONLY  200 MG OF KISQALI AT 2 PM, NO MORE THAN 2 PM)
     Route: 048
  3. FEMARA [Suspect]
     Active Substance: LETROZOLE
     Indication: Breast cancer
     Dosage: UNK (TABLET)
     Route: 048

REACTIONS (6)
  - Malaise [Unknown]
  - Drug intolerance [Unknown]
  - Decreased immune responsiveness [Unknown]
  - Pain [Unknown]
  - Illness [Unknown]
  - Inappropriate schedule of product administration [Unknown]
